FAERS Safety Report 5100521-2 (Version None)
Quarter: 2006Q3

REPORT INFORMATION
  Report Type: 
  Country: None (occurrence: None)
  Receive Date: 20060907
  Receipt Date: 20060907
  Transmission Date: 20061208
  Serious: Yes (Other)
  Sender: FDA-Public Use
  Company Number: None

PATIENT
  Age: 63 Year
  Sex: Male
  Weight: 113 kg

DRUGS (12)
  1. LOVASTATIN [Suspect]
     Indication: HYPERLIPIDAEMIA
     Dosage: 20 MG EVERY NIGHT PO
     Route: 048
     Dates: start: 20060827, end: 20060901
  2. FERROUS SULFATE TAB [Concomitant]
  3. FOLIC ACID [Concomitant]
  4. FUROSEMIDE [Concomitant]
  5. GABAPENTIN [Concomitant]
  6. ISOSORBIDE MONONITRATE [Concomitant]
  7. METROPROLOL [Concomitant]
  8. NITROGLYCERIN SL [Concomitant]
  9. OMEPRAZOLE [Concomitant]
  10. PHENOBARBITAL TAB [Concomitant]
  11. PHENYTOIN [Concomitant]
  12. POTASSIUM CHLORIDE [Concomitant]

REACTIONS (3)
  - BLOOD CREATINE PHOSPHOKINASE INCREASED [None]
  - MYALGIA [None]
  - NON-CARDIAC CHEST PAIN [None]
